FAERS Safety Report 7432040-2 (Version None)
Quarter: 2011Q2

REPORT INFORMATION
  Report Type: 
  Country: None (occurrence: None)
  Receive Date: 20110422
  Receipt Date: 20110419
  Transmission Date: 20111010
  Serious: Yes (Death, Hospitalization)
  Sender: FDA-Public Use
  Company Number: PH-BRISTOL-MYERS SQUIBB COMPANY-15683931

PATIENT
  Sex: Male

DRUGS (2)
  1. GEMCITABINE HCL [Suspect]
     Indication: NON-SMALL CELL LUNG CANCER
     Dosage: LAST INFUSION ON 10APR11 NO: OF INFUSIONS-5
     Dates: start: 20110224
  2. CISPLATIN [Suspect]
     Indication: NON-SMALL CELL LUNG CANCER
     Dosage: LAST INFUSION ON 10APR11 NO: OF INF-3
     Dates: start: 20110224

REACTIONS (5)
  - MULTI-ORGAN FAILURE [None]
  - RENAL FAILURE ACUTE [None]
  - DEHYDRATION [None]
  - NEOPLASM MALIGNANT [None]
  - CARDIO-RESPIRATORY ARREST [None]
